FAERS Safety Report 22045738 (Version 2)
Quarter: 2023Q2

REPORT INFORMATION
  Report Type: Spontaneous
  Country: US (occurrence: US)
  Receive Date: 20230228
  Receipt Date: 20230407
  Transmission Date: 20230721
  Serious: No
  Sender: FDA-Public Use
  Company Number: US-PFIZER INC-PV202300035372

PATIENT
  Age: 75 Year
  Sex: Female

DRUGS (1)
  1. IBRANCE [Suspect]
     Active Substance: PALBOCICLIB
     Dosage: 75 MG, ONE TABLET DAILY FOR DAYS 1-14 THEN 14 DAYS OFF FOR A 28 DAY CYCLE
     Route: 048

REACTIONS (3)
  - Gastrointestinal disorder [Unknown]
  - Product dispensing error [Unknown]
  - Off label use [Unknown]
